FAERS Safety Report 14439873 (Version 1)
Quarter: 2018Q1

REPORT INFORMATION
  Report Type: Spontaneous
  Country: US (occurrence: US)
  Receive Date: 20180125
  Receipt Date: 20180125
  Transmission Date: 20180509
  Serious: No
  Sender: FDA-Public Use
  Company Number: US-ACORDA-ACO_136675_2017

PATIENT
  Sex: Male

DRUGS (1)
  1. TIZANIDINE. [Suspect]
     Active Substance: TIZANIDINE
     Indication: OFF LABEL USE
     Dosage: 2 MG, HS
     Route: 048
     Dates: start: 201704

REACTIONS (2)
  - Off label use [Unknown]
  - Therapeutic response unexpected [Unknown]
